FAERS Safety Report 12183661 (Version 2)
Quarter: 2016Q2

REPORT INFORMATION
  Report Type: Spontaneous
  Country: US (occurrence: US)
  Receive Date: 20160316
  Receipt Date: 20160505
  Transmission Date: 20160815
  Serious: Yes (Hospitalization)
  Sender: FDA-Public Use
  Company Number: US-PFIZER INC-2016149047

PATIENT
  Age: 73 Year
  Sex: Female
  Weight: 74.83 kg

DRUGS (15)
  1. AUGMENTIN [Concomitant]
     Active Substance: AMOXICILLIN\CLAVULANATE POTASSIUM
     Dosage: 1 DF, 3X/DAY (AMOXICILLIN SODIUM: 500; CLAVULANATE POTASSIUM 125; ONE PO Q8 HOURS FOR 3 DAYS)
     Route: 048
  2. SERTRALINE [Concomitant]
     Active Substance: SERTRALINE HYDROCHLORIDE
     Dosage: 150 MG, DAILY
     Route: 048
  3. METOPROLOL. [Concomitant]
     Active Substance: METOPROLOL
     Dosage: UNK
  4. ZOFRAN [Concomitant]
     Active Substance: ONDANSETRON HYDROCHLORIDE
     Dosage: UNK
  5. PREDNISONE. [Concomitant]
     Active Substance: PREDNISONE
     Dosage: 10 MG, DAILY (FOR 7 DAYS)
     Route: 048
  6. ZOLOFT [Concomitant]
     Active Substance: SERTRALINE HYDROCHLORIDE
     Dosage: UNK
  7. ONDANSETRON [Concomitant]
     Active Substance: ONDANSETRON
     Indication: NAUSEA
     Dosage: 8 MG, AS NEEDED (DAILY)
     Route: 048
  8. ONDANSETRON [Concomitant]
     Active Substance: ONDANSETRON
     Indication: VOMITING
  9. SUTENT [Suspect]
     Active Substance: SUNITINIB MALATE
     Indication: RENAL CANCER STAGE IV
     Dosage: 50 MG, UNK
     Dates: start: 20150130
  10. SIMVASTATIN. [Concomitant]
     Active Substance: SIMVASTATIN
     Dosage: 20 MG, DAILY
     Route: 048
  11. FLUTICASONE [Concomitant]
     Active Substance: FLUTICASONE\FLUTICASONE PROPIONATE
     Dosage: UNK, DAILY  (2 SPRAYS TO EACH NARIS)
     Route: 045
  12. SUTENT [Suspect]
     Active Substance: SUNITINIB MALATE
     Dosage: 25 MG, UNK (1 3 DAYS/WEEK)
     Route: 048
     Dates: start: 20150130, end: 201603
  13. AMLODIPINE [Concomitant]
     Active Substance: AMLODIPINE BESYLATE
     Dosage: 10 MG, DAILY
     Route: 048
  14. MINOXIDIL. [Concomitant]
     Active Substance: MINOXIDIL
     Dosage: 10 MG, 2X/DAY
     Route: 048
  15. METOPROLOL SUCCINATE. [Concomitant]
     Active Substance: METOPROLOL SUCCINATE
     Dosage: 75 MG, 2X/DAY
     Route: 048

REACTIONS (12)
  - Acute kidney injury [Unknown]
  - Cardiac failure congestive [Unknown]
  - Pneumonia [Recovering/Resolving]
  - Disease progression [Unknown]
  - Diarrhoea [Unknown]
  - Renal cancer stage IV [Unknown]
  - Urinary tract infection [Recovered/Resolved]
  - Nausea [Unknown]
  - Blood pressure increased [Unknown]
  - Blood potassium increased [Unknown]
  - Vomiting [Unknown]
  - Anaemia [Unknown]

NARRATIVE: CASE EVENT DATE: 201503
